FAERS Safety Report 7086445-2 (Version None)
Quarter: 2010Q4

REPORT INFORMATION
  Report Type: 
  Country: None (occurrence: None)
  Receive Date: 20101105
  Receipt Date: 20101028
  Transmission Date: 20110411
  Serious: Yes (Other)
  Sender: FDA-Public Use
  Company Number: GXKR2010GB12159

PATIENT
  Sex: Male

DRUGS (4)
  1. SIMVASTATIN [Suspect]
     Route: 065
  2. BISOPROLOL (NGX) [Suspect]
     Dosage: 10 MG, QD
     Route: 065
  3. FLECAINIDE ACETATE [Suspect]
     Dosage: 110 MG, QD
     Route: 065
  4. TRITACE [Suspect]
     Indication: HYPERTENSION
     Dosage: 5 MG, QD
     Route: 048
     Dates: start: 20100501

REACTIONS (3)
  - ATRIAL FIBRILLATION [None]
  - DRUG INTERACTION [None]
  - PALPITATIONS [None]
